FAERS Safety Report 6880791-0 (Version None)
Quarter: 2010Q3

REPORT INFORMATION
  Report Type: 
  Country: None (occurrence: None)
  Receive Date: 20100728
  Receipt Date: 20100719
  Transmission Date: 20110219
  Serious: Yes (Hospitalization)
  Sender: FDA-Public Use
  Company Number: CO-BRISTOL-MYERS SQUIBB COMPANY-15200132

PATIENT
  Age: 72 Year
  Sex: Male

DRUGS (1)
  1. WARFARIN SODIUM [Suspect]
     Indication: ATRIAL FIBRILLATION

REACTIONS (5)
  - ASPIRATION BRONCHIAL [None]
  - INTERNATIONAL NORMALISED RATIO INCREASED [None]
  - INTESTINAL HAEMATOMA [None]
  - PNEUMONIA [None]
  - RESPIRATORY FAILURE [None]
